FAERS Safety Report 26216707 (Version 1)
Quarter: 2025Q4

REPORT INFORMATION
  Report Type: Report from Study
  Country: CA (occurrence: CA)
  Receive Date: 20251231
  Receipt Date: 20251231
  Transmission Date: 20260118
  Serious: Yes (Hospitalization)
  Sender: TAKEDA
  Company Number: CA-TAKEDA-2025TUS119215

PATIENT
  Age: 61 Year
  Sex: Male

DRUGS (9)
  1. HUMAN IMMUNOGLOBULIN G [Suspect]
     Active Substance: HUMAN IMMUNOGLOBULIN G
     Indication: Secondary immunodeficiency
     Dosage: 6 GRAM, 1/WEEK
     Dates: start: 20241230
  2. AMOXICILLIN\CLAVULANATE POTASSIUM [Concomitant]
     Active Substance: AMOXICILLIN\CLAVULANATE POTASSIUM
     Dosage: UNK UNK, BID
  3. MINT FUROSEMIDE [Concomitant]
     Dosage: 20 MILLIGRAM, QD
  4. SULFAMETHOXAZOLE\TRIMETHOPRIM [Concomitant]
     Active Substance: SULFAMETHOXAZOLE\TRIMETHOPRIM
     Dosage: UNK UNK, 3/WEEK
  5. DEXAMETHASONE [Concomitant]
     Active Substance: DEXAMETHASONE
     Dosage: 12 MILLIGRAM, QD
  6. ELIQUIS [Concomitant]
     Active Substance: APIXABAN
     Dosage: UNK UNK, BID
  7. LENALIDOMIDE [Concomitant]
     Active Substance: LENALIDOMIDE
     Dosage: 10 MILLIGRAM, QD
  8. TENOFOVIR [Concomitant]
     Active Substance: TENOFOVIR
     Dosage: 300 MILLIGRAM, QD
  9. CYCLOPHOSPHAMIDE [Concomitant]
     Active Substance: CYCLOPHOSPHAMIDE
     Dosage: 200 MILLIGRAM, QD

REACTIONS (1)
  - Heart rate increased [Unknown]

NARRATIVE: CASE EVENT DATE: 20251031
